FAERS Safety Report 25013229 (Version 1)
Quarter: 2025Q1

REPORT INFORMATION
  Report Type: Spontaneous
  Country: GB (occurrence: GB)
  Receive Date: 20250226
  Receipt Date: 20250226
  Transmission Date: 20250408
  Serious: Yes (Disabling, Other)
  Sender: AUROBINDO
  Company Number: GB-MHRA-MED-202502110949102330-WRSQJ

PATIENT
  Age: 65 Year
  Sex: Female
  Weight: 93 kg

DRUGS (2)
  1. ROSUVASTATIN CALCIUM [Suspect]
     Active Substance: ROSUVASTATIN CALCIUM
     Indication: Hypercholesterolaemia
     Dosage: 5 MILLIGRAM, ONCE A DAY
     Route: 065
     Dates: start: 20241210, end: 20250117
  2. OMEPRAZOLE [Concomitant]
     Active Substance: OMEPRAZOLE
     Indication: Hiatus hernia
     Route: 065
     Dates: start: 20070108

REACTIONS (1)
  - Retinal detachment [Not Recovered/Not Resolved]

NARRATIVE: CASE EVENT DATE: 20250117
